FAERS Safety Report 5162860-9 (Version None)
Quarter: 2006Q4

REPORT INFORMATION
  Report Type: 
  Country: None (occurrence: None)
  Receive Date: 20061201
  Receipt Date: 20061027
  Transmission Date: 20070319
  Serious: Yes (Life-Threatening, Hospitalization)
  Sender: FDA-Public Use
  Company Number: JP-JPN-A200604595

PATIENT
  Age: 79 Year
  Sex: Female
  Weight: 40 kg

DRUGS (9)
  1. VALTREX [Suspect]
     Indication: HERPES ZOSTER
     Dosage: 1000MG THREE TIMES PER DAY
     Route: 048
     Dates: start: 20061024, end: 20061026
  2. UNKNOWN DRUG [Concomitant]
     Dosage: 1TAB PER DAY
     Route: 048
  3. CONAN [Concomitant]
     Dosage: 10MG PER DAY
     Route: 048
  4. PURSENNID [Concomitant]
     Dosage: 1TAB PER DAY
     Route: 048
  5. NIVADIL [Concomitant]
     Dosage: 8MG PER DAY
     Route: 048
  6. EPADEL [Concomitant]
     Dosage: 900MG PER DAY
     Route: 048
  7. MELBIN [Concomitant]
     Dosage: 750MG PER DAY
     Route: 048
  8. AMARYL [Concomitant]
     Dosage: 3MG PER DAY
     Route: 048
  9. HALCION [Concomitant]
     Dosage: .25MG PER DAY
     Route: 048

REACTIONS (8)
  - DEPRESSED LEVEL OF CONSCIOUSNESS [None]
  - ENCEPHALOPATHY [None]
  - HYPERKALAEMIA [None]
  - RENAL FAILURE ACUTE [None]
  - RENAL IMPAIRMENT [None]
  - RESTLESSNESS [None]
  - SOMNOLENCE [None]
  - SPEECH DISORDER [None]
